FAERS Safety Report 7155086-0 (Version None)
Quarter: 2010Q4

REPORT INFORMATION
  Report Type: 
  Country: None (occurrence: None)
  Receive Date: 20101214
  Receipt Date: 20100421
  Transmission Date: 20110411
  Serious: Yes (Other)
  Sender: FDA-Public Use
  Company Number: US-AMGEN-KDL370907

PATIENT

DRUGS (1)
  1. ENBREL [Suspect]
     Indication: RHEUMATOID ARTHRITIS
     Dosage: 50 MG, QWK
     Route: 058
     Dates: start: 20090604

REACTIONS (4)
  - ANAEMIA [None]
  - MENORRHAGIA [None]
  - RED BLOOD CELL COUNT DECREASED [None]
  - UTERINE LEIOMYOMA [None]
